FAERS Safety Report 5949934-7 (Version None)
Quarter: 2008Q4

REPORT INFORMATION
  Report Type: 
  Country: None (occurrence: None)
  Receive Date: 20081112
  Receipt Date: 20081110
  Transmission Date: 20090506
  Serious: Yes (Hospitalization)
  Sender: FDA-Public Use
  Company Number: CN-ASTRAZENECA-2008AP07070

PATIENT
  Sex: Female

DRUGS (2)
  1. SEROQUEL [Suspect]
     Indication: AFFECTIVE DISORDER
     Dosage: 100 TABLETS TAKEN, 0.3 G/TABLET
     Route: 048
     Dates: start: 20080701, end: 20080701
  2. LITHIUM CARBONATE [Concomitant]
     Indication: BIPOLAR DISORDER
     Route: 048

REACTIONS (3)
  - DRUG INTERACTION [None]
  - INTENTIONAL OVERDOSE [None]
  - THYROXINE DECREASED [None]
